FAERS Safety Report 6425606-X (Version None)
Quarter: 2009Q4

REPORT INFORMATION
  Report Type: 
  Country: None (occurrence: None)
  Receive Date: 20091103
  Receipt Date: 20091020
  Transmission Date: 20100525
  Serious: Yes (Hospitalization)
  Sender: FDA-Public Use
  Company Number: IT-MYLANLABS-2009S1018269

PATIENT
  Age: 72 Year
  Sex: Male

DRUGS (2)
  1. AMIODARONE [Suspect]
     Indication: SUPRAVENTRICULAR TACHYARRHYTHMIA
  2. CARVEDILOL [Concomitant]
     Indication: SUPRAVENTRICULAR TACHYARRHYTHMIA

REACTIONS (2)
  - HYPOTHYROIDISM [None]
  - RENAL FAILURE ACUTE [None]
